FAERS Safety Report 7067895-7 (Version None)
Quarter: 2010Q4

REPORT INFORMATION
  Report Type: 
  Country: None (occurrence: None)
  Receive Date: 20101004
  Receipt Date: 20100920
  Transmission Date: 20110411
  Serious: Yes (Hospitalization, Other)
  Sender: FDA-Public Use
  Company Number: 2010PROUSA00055

PATIENT
  Age: 74 Year
  Sex: Male

DRUGS (6)
  1. PROVENGE [Suspect]
     Indication: PROSTATE CANCER METASTATIC
     Dosage: 250 ML, SINGLE, INTRAVENOUS
     Route: 042
     Dates: start: 20100827, end: 20100827
  2. PROVENGE [Suspect]
     Indication: PROSTATE CANCER METASTATIC
     Dosage: 250 ML, SINGLE, INTRAVENOUS
     Route: 042
     Dates: start: 20100910, end: 20100910
  3. PROVENGE [Suspect]
  4. TYLENOL /00020001/ (PARACETAMOL) [Concomitant]
  5. LUPRON (LEUPRORELIN ACETATE) INJECTION [Concomitant]
  6. AMBIEN CR [Concomitant]

REACTIONS (3)
  - ENDOCARDITIS [None]
  - HUMAN EHRLICHIOSIS [None]
  - PYREXIA [None]
